FAERS Safety Report 18583440 (Version 1)
Quarter: 2020Q4

REPORT INFORMATION
  Report Type: Spontaneous
  Country: TH (occurrence: TH)
  Receive Date: 20201206
  Receipt Date: 20201206
  Transmission Date: 20210114
  Serious: Yes (Other)
  Sender: FDA-Public Use
  Company Number: TH-ROCHE-2725818

PATIENT

DRUGS (1)
  1. LUCENTIS [Suspect]
     Active Substance: RANIBIZUMAB
     Indication: DIABETIC RETINOPATHY
     Dosage: UNK
     Route: 065

REACTIONS (1)
  - Retinal artery stenosis [Unknown]
